FAERS Safety Report 9341998 (Version 1)
Quarter: 2013Q2

REPORT INFORMATION
  Report Type: Spontaneous
  Country: IT (occurrence: IT)
  Receive Date: 20130611
  Receipt Date: 20130611
  Transmission Date: 20140414
  Serious: Yes (Hospitalization)
  Sender: FDA-Public Use
  Company Number: IT-ASTRAZENECA-2013SE40147

PATIENT
  Age: 27478 Day
  Sex: Female

DRUGS (4)
  1. ESOMEPRAZOLE [Suspect]
     Indication: PROPHYLAXIS AGAINST GASTROINTESTINAL ULCER
     Route: 048
     Dates: start: 20120101, end: 20121029
  2. PRITOR PLUS [Suspect]
     Indication: HYPERTENSION
     Dosage: 40 MG /12.5 MG, 1 DF DAILY
     Route: 048
     Dates: start: 20120101, end: 20121029
  3. CORTONE ACETATO [Concomitant]
  4. DIBASE [Concomitant]
     Dosage: 10000 I.U./ML
     Route: 048

REACTIONS (1)
  - Electrolyte imbalance [Recovering/Resolving]
